FAERS Safety Report 15073037 (Version 6)
Quarter: 2019Q2

REPORT INFORMATION
  Report Type: Spontaneous
  Country: ES (occurrence: ES)
  Receive Date: 20180627
  Receipt Date: 20190627
  Transmission Date: 20190711
  Serious: Yes (Hospitalization, Other)
  Sender: FDA-Public Use
  Company Number: ES-AUROBINDO-AUR-APL-2018-030872

PATIENT

DRUGS (12)
  1. ATORVASTATIN [Interacting]
     Active Substance: ATORVASTATIN
     Indication: DYSLIPIDAEMIA
     Dosage: 10 MILLIGRAM, DAILY
     Route: 065
     Dates: start: 20130501
  2. QUETIAPINE FILM-COATED TABLETS 300MG [Suspect]
     Active Substance: QUETIAPINE
     Indication: SCHIZOPHRENIA
     Dosage: 300 MILLIGRAM, ONCE A DAY, 300 MILLIGRAM EVERY 24 HOURS SINCE SIX YEARS OF AGE
     Route: 065
  3. BIPERIDEN [Interacting]
     Active Substance: BIPERIDEN
     Dosage: 4 MG SLOW RELEASE, 1 TABLET EVERY 24 HOURSUNK
     Route: 065
  4. QUETIAPINE FILM-COATED TABLETS 300MG [Interacting]
     Active Substance: QUETIAPINE
     Indication: DYSLIPIDAEMIA
     Dosage: 200 MILLIGRAM, DAILY
     Route: 065
  5. QUETIAPINE FILM-COATED TABLETS 300MG [Interacting]
     Active Substance: QUETIAPINE
     Dosage: 1 DOSAGE FORM, ONCE A DAY, 24 HOUR, FOR 6 YEARS UP TO DATE
     Route: 065
  6. DIAZEPAM. [Interacting]
     Active Substance: DIAZEPAM
     Indication: EXTRAPYRAMIDAL DISORDER
     Dosage: 7.5 MILLIGRAM, 7.5 MG MORE OF DIAZEPAM WAS ADMINISTERED
     Route: 065
     Dates: start: 201612
  7. DIAZEPAM. [Interacting]
     Active Substance: DIAZEPAM
     Dosage: 5 MILLIGRAM, 1 VIAL OF 5 MG, EVERY 4 WEEKS
     Route: 065
  8. BIPERIDEN [Interacting]
     Active Substance: BIPERIDEN
     Indication: EXTRAPYRAMIDAL DISORDER
     Dosage: 1 DOSAGE FORM, ONCE A DAY
     Route: 065
  9. BIPERIDEN [Interacting]
     Active Substance: BIPERIDEN
     Indication: SCHIZOPHRENIA
     Dosage: BE INCREASED FOR 4 DAYS
     Route: 048
     Dates: start: 201612
  10. BIPERIDEN [Interacting]
     Active Substance: BIPERIDEN
     Dosage: 5 MILLIGRAM, 4 WEEK, 1 VIAL OF 5 MG, EVERY 4 WEEKS ,FOR 6 YEARS UP TO DATE
     Route: 065
  11. FLUPHENAZINE DECANOATE. [Interacting]
     Active Substance: FLUPHENAZINE DECANOATE
     Indication: SCHIZOPHRENIA
     Dosage: 25 MILLIGRAM, 4 WEEK, FOR 6 YEARS UP TO DATE (1 VIAL OF 25 MG EVERY 4 WEEKS)
     Route: 065
  12. DIAZEPAM. [Interacting]
     Active Substance: DIAZEPAM
     Dosage: 2.5 MILLIGRAM
     Route: 065

REACTIONS (9)
  - Pyrexia [Recovered/Resolved]
  - Rhabdomyolysis [Recovered/Resolved]
  - Neuromuscular toxicity [Recovered/Resolved]
  - Motor dysfunction [Recovered/Resolved]
  - Toxicity to various agents [Recovered/Resolved]
  - Extrapyramidal disorder [Recovered/Resolved]
  - Loss of consciousness [Unknown]
  - Drug interaction [Recovered/Resolved]
  - Fall [Recovered/Resolved]

NARRATIVE: CASE EVENT DATE: 201612
